FAERS Safety Report 4277968-X (Version None)
Quarter: 2004Q1

REPORT INFORMATION
  Report Type: 
  Country: None (occurrence: None)
  Receive Date: 20040120
  Receipt Date: 20040108
  Transmission Date: 20041129
  Serious: Yes (Other)
  Sender: FDA-Public Use
  Company Number: US-JNJFOC-20031203035

PATIENT
  Age: 25 Year
  Sex: Female
  Weight: 45.3597 kg

DRUGS (4)
  1. REMICADE [Suspect]
     Indication: CROHN'S DISEASE
     Dosage: 5 MG/KG, INTRAVENOUS
     Route: 042
  2. PREDNISONE [Concomitant]
  3. DIPHENHYDRAMINE HCL [Concomitant]
  4. ACETAMINOPHEN [Concomitant]

REACTIONS (5)
  - ANXIETY [None]
  - CHEST PAIN [None]
  - DIZZINESS [None]
  - DYSPNOEA [None]
  - ERYTHEMA [None]
